FAERS Safety Report 11682813 (Version 1)
Quarter: 2015Q4

REPORT INFORMATION
  Report Type: Report from Study
  Country: US (occurrence: US)
  Receive Date: 20151029
  Receipt Date: 20151029
  Transmission Date: 20160304
  Serious: Yes (Hospitalization, Other)
  Sender: FDA-Public Use
  Company Number: US-GILEAD-2015-0179468

PATIENT
  Age: 27 Year
  Sex: Female

DRUGS (17)
  1. ENOXAPARIN [Concomitant]
     Active Substance: ENOXAPARIN
  2. ENALAPRIL [Concomitant]
     Active Substance: ENALAPRIL
  3. ADCIRCA [Suspect]
     Active Substance: TADALAFIL
     Indication: PRODUCT USED FOR UNKNOWN INDICATION
     Route: 065
  4. DEPO-ESTRADIOL [Concomitant]
     Active Substance: ESTRADIOL CYPIONATE
  5. PERCOCET [Concomitant]
     Active Substance: ACETAMINOPHEN\OXYCODONE HYDROCHLORIDE
  6. FERROUS GLUCONATE [Concomitant]
     Active Substance: FERROUS GLUCONATE
  7. NEURONTIN [Concomitant]
     Active Substance: GABAPENTIN
  8. TEGRETOL [Concomitant]
     Active Substance: CARBAMAZEPINE
  9. COLCHICINE. [Concomitant]
     Active Substance: COLCHICINE
  10. FOLIC ACID. [Concomitant]
     Active Substance: FOLIC ACID
  11. CELLCEPT [Concomitant]
     Active Substance: MYCOPHENOLATE MOFETIL\MYCOPHENOLATE MOFETIL HYDROCHLORIDE
  12. AMBRISENTAN [Suspect]
     Active Substance: AMBRISENTAN
     Indication: PULMONARY HYPERTENSION
     Dosage: 10 MG, QD
     Route: 065
     Dates: start: 20130423
  13. FOSAMAX [Concomitant]
     Active Substance: ALENDRONATE SODIUM
  14. FAMOTIDINE. [Concomitant]
     Active Substance: FAMOTIDINE
  15. WARFARIN [Concomitant]
     Active Substance: WARFARIN
  16. PREDNISONE. [Concomitant]
     Active Substance: PREDNISONE
  17. TOPAMAX [Concomitant]
     Active Substance: TOPIRAMATE

REACTIONS (3)
  - Dyspnoea [Unknown]
  - Drug dose omission [Unknown]
  - Chest pain [Unknown]

NARRATIVE: CASE EVENT DATE: 20151024
